FAERS Safety Report 17075063 (Version 5)
Quarter: 2020Q2

REPORT INFORMATION
  Report Type: Report from Study
  Country: US (occurrence: US)
  Receive Date: 20191126
  Receipt Date: 20200613
  Transmission Date: 20200713
  Serious: Yes (Other)
  Sender: FDA-Public Use
  Company Number: NVSC2019US044658

PATIENT
  Sex: Male
  Weight: 97.52 kg

DRUGS (3)
  1. ASPIRIN. [Concomitant]
     Active Substance: ASPIRIN
     Indication: PRODUCT USED FOR UNKNOWN INDICATION
     Dosage: UNK
     Route: 065
  2. TALTZ [Concomitant]
     Active Substance: IXEKIZUMAB
     Indication: PSORIASIS
     Dosage: 80 MG, Q2W
     Route: 065
     Dates: start: 20181224
  3. COSENTYX [Suspect]
     Active Substance: SECUKINUMAB
     Indication: PSORIASIS
     Dosage: 300 MG, QMO
     Route: 065
     Dates: start: 20151008, end: 20181213

REACTIONS (7)
  - Fatigue [Unknown]
  - Arthralgia [Unknown]
  - Gastroenteritis [Unknown]
  - Squamous cell carcinoma [Recovered/Resolved]
  - Bronchitis [Unknown]
  - Arthritis [Unknown]
  - Parakeratosis [Recovered/Resolved]

NARRATIVE: CASE EVENT DATE: 2016
